FAERS Safety Report 22251997 (Version 1)
Quarter: 2023Q2

REPORT INFORMATION
  Report Type: Spontaneous
  Country: US (occurrence: None)
  Receive Date: 20230425
  Receipt Date: 20230425
  Transmission Date: 20230722
  Serious: No
  Sender: FDA-Public Use
  Company Number: 2023A083127

PATIENT
  Age: 19470 Day
  Sex: Female
  Weight: 135.2 kg

DRUGS (1)
  1. FARXIGA [Suspect]
     Active Substance: DAPAGLIFLOZIN PROPANEDIOL
     Route: 048

REACTIONS (9)
  - Dyspnoea [Not Recovered/Not Resolved]
  - Headache [Unknown]
  - Tremor [Not Recovered/Not Resolved]
  - Blood glucose decreased [Unknown]
  - Dizziness [Unknown]
  - Asthenia [Unknown]
  - Abdominal discomfort [Unknown]
  - Feeling jittery [Unknown]
  - Dizziness [Unknown]

NARRATIVE: CASE EVENT DATE: 20230313
